FAERS Safety Report 5049439-4 (Version None)
Quarter: 2006Q3

REPORT INFORMATION
  Report Type: 
  Country: None (occurrence: None)
  Receive Date: 20060712
  Receipt Date: 20060214
  Transmission Date: 20061208
  Serious: Yes (Hospitalization)
  Sender: FDA-Public Use
  Company Number: JP-ROCHE-437137

PATIENT
  Age: 3 Year
  Sex: Male
  Weight: 17 kg

DRUGS (4)
  1. TAMIFLU [Suspect]
     Route: 048
     Dates: start: 20060206, end: 20060211
  2. MUCOSAL [Concomitant]
     Route: 048
     Dates: start: 20060208, end: 20060211
  3. CELESTAMINE TAB [Concomitant]
     Route: 048
     Dates: start: 20060208, end: 20060211
  4. ZESULAN [Concomitant]
     Route: 048
     Dates: start: 20060208, end: 20060211

REACTIONS (1)
  - NEPHROTIC SYNDROME [None]
